FAERS Safety Report 25719483 (Version 1)
Quarter: 2025Q3

REPORT INFORMATION
  Report Type: Spontaneous
  Country: US (occurrence: US)
  Receive Date: 20250824
  Receipt Date: 20250824
  Transmission Date: 20251021
  Serious: No
  Sender: BAUSCH AND LOMB
  Company Number: US-BAUSCHBL-2025BNL014408

PATIENT
  Age: 94 Year
  Sex: Female

DRUGS (1)
  1. DORZOLAMIDE HYDROCHLORIDE [Suspect]
     Active Substance: DORZOLAMIDE HYDROCHLORIDE
     Indication: Product used for unknown indication
     Route: 047
     Dates: start: 2022

REACTIONS (8)
  - Eye irritation [Unknown]
  - Eye pruritus [Unknown]
  - Eyelid ptosis [Unknown]
  - Photosensitivity reaction [Unknown]
  - Skin irritation [Unknown]
  - Visual impairment [Unknown]
  - Vision blurred [Unknown]
  - Eye pain [Unknown]
